FAERS Safety Report 5591242-0 (Version None)
Quarter: 2008Q1

REPORT INFORMATION
  Report Type: 
  Country: None (occurrence: None)
  Receive Date: 20080115
  Receipt Date: 20080114
  Transmission Date: 20080703
  Serious: Yes (Hospitalization, Other)
  Sender: FDA-Public Use
  Company Number: US-ALLERGAN-0713935US

PATIENT
  Age: 72 Year
  Sex: Female

DRUGS (4)
  1. PRED FORTE [Suspect]
     Indication: POSTOPERATIVE CARE
     Dosage: 1 GTT, QID
     Route: 047
     Dates: start: 20071212, end: 20071217
  2. ACULAR LS [Suspect]
     Indication: POSTOPERATIVE CARE
     Dosage: UNK, BID
     Route: 047
     Dates: start: 20071212
  3. ZYMAR [Concomitant]
     Indication: POSTOPERATIVE CARE
     Dosage: UNK, BID
     Route: 047
     Dates: start: 20071212
  4. GLYBURIDE [Concomitant]
     Indication: DIABETES MELLITUS

REACTIONS (7)
  - CHOKING [None]
  - COUGH [None]
  - DRY THROAT [None]
  - DYSPNOEA [None]
  - HYPERSENSITIVITY [None]
  - THROAT TIGHTNESS [None]
  - WHEEZING [None]
